FAERS Safety Report 13504603 (Version 2)
Quarter: 2017Q3

REPORT INFORMATION
  Report Type: Spontaneous
  Country: CA (occurrence: CA)
  Receive Date: 20170502
  Receipt Date: 20170920
  Transmission Date: 20171127
  Serious: Yes (Hospitalization)
  Sender: FDA-Public Use
  Company Number: CA-OTSUKA-2017_009686

PATIENT
  Age: 5 Year
  Sex: Female
  Weight: 17 kg

DRUGS (10)
  1. BUSULFEX [Suspect]
     Active Substance: BUSULFAN
     Indication: LEUKAEMIA
     Dosage: 15-22 MG, UNK
     Route: 042
     Dates: start: 20091117, end: 20091121
  2. CYCLOPHOSPHAMIDE. [Suspect]
     Active Substance: CYCLOPHOSPHAMIDE
     Indication: LEUKAEMIA
     Dosage: 900 MG, AS REQUIRED
     Route: 042
     Dates: start: 20091121, end: 20091124
  3. METHOTREXATE. [Concomitant]
     Active Substance: METHOTREXATE
     Indication: PRODUCT USED FOR UNKNOWN INDICATION
     Dosage: 7.5-11 MG (CUMMULATED DOSE 35MG/M^2) (4 DOSE)
     Route: 042
     Dates: start: 20091127, end: 20091202
  4. CYTARABINE. [Suspect]
     Active Substance: CYTARABINE
     Dosage: 690 MG, UNK
     Route: 042
     Dates: start: 20091001, end: 20091006
  5. CYTARABINE. [Suspect]
     Active Substance: CYTARABINE
     Indication: LEUKAEMIA
     Dosage: 40-70 MG, UNK
     Route: 037
     Dates: start: 20090715, end: 20091116
  6. DAUNOMYCIN [Suspect]
     Active Substance: DAUNORUBICIN
     Indication: LEUKAEMIA
     Dosage: 35 MG, UNK
     Route: 042
     Dates: start: 20090715
  7. MYLOTARG [Concomitant]
     Active Substance: GEMTUZUMAB OZOGAMICIN
     Indication: PRODUCT USED FOR UNKNOWN INDICATION
     Dosage: 2.1 MG, SINGLE (CUMMULATED DOSE 3 MG/M^2)
     Route: 042
     Dates: start: 20090720, end: 20090720
  8. CYTARABINE. [Suspect]
     Active Substance: CYTARABINE
     Indication: LEUKAEMIA
     Dosage: 70 MG, UNK
     Route: 042
     Dates: start: 20090715, end: 20090903
  9. METHOTREXATE. [Concomitant]
     Active Substance: METHOTREXATE
     Indication: PRODUCT USED FOR UNKNOWN INDICATION
     Dosage: 12 MG, UNK (4 DOSES)
     Route: 037
     Dates: start: 20100107, end: 20100218
  10. ETOPOSIDE. [Suspect]
     Active Substance: ETOPOSIDE
     Indication: LEUKAEMIA
     Dosage: 70-150 MG, UNK
     Route: 042
     Dates: start: 20090715, end: 20091005

REACTIONS (1)
  - Cardiotoxicity [Not Recovered/Not Resolved]

NARRATIVE: CASE EVENT DATE: 20090731
